FAERS Safety Report 4636225-X (Version None)
Quarter: 2005Q2

REPORT INFORMATION
  Report Type: 
  Country: None (occurrence: None)
  Receive Date: 20050325
  Receipt Date: 20041207
  Transmission Date: 20051028
  Serious: No
  Sender: FDA-Public Use
  Company Number: USA040568239

PATIENT
  Age: 74 Year
  Sex: Female
  Weight: 50 kg

DRUGS (3)
  1. FORTEO [Suspect]
     Indication: OSTEOPOROSIS
     Dosage: 20 UG
     Dates: start: 20040519
  2. EVISTA [Concomitant]
  3. FOSAMAX [Concomitant]

REACTIONS (15)
  - ANXIETY [None]
  - ARTHRITIS [None]
  - BLOOD CALCIUM INCREASED [None]
  - BONE PAIN [None]
  - BRONCHITIS [None]
  - FATIGUE [None]
  - FEELING ABNORMAL [None]
  - INJECTION SITE HAEMORRHAGE [None]
  - INSOMNIA [None]
  - OVERDOSE [None]
  - PAIN [None]
  - PAIN IN EXTREMITY [None]
  - PANIC REACTION [None]
  - PHARYNGITIS [None]
  - PRURITUS [None]
